FAERS Safety Report 15557856 (Version 2)
Quarter: 2018Q4

REPORT INFORMATION
  Report Type: Spontaneous
  Country: FR (occurrence: FR)
  Receive Date: 20181027
  Receipt Date: 20181029
  Transmission Date: 20190205
  Serious: Yes (Hospitalization, Congenital Anomaly)
  Sender: FDA-Public Use
  Company Number: FR-009507513-1810FRA006901

PATIENT
  Sex: Female

DRUGS (10)
  1. SOLU-MEDROL [Suspect]
     Active Substance: METHYLPREDNISOLONE SODIUM SUCCINATE
     Indication: RELAPSING MULTIPLE SCLEROSIS
     Dosage: 1 GRAM, QD
     Route: 064
     Dates: start: 20170801, end: 20170802
  2. AMOXICILLIN SODIUM [Suspect]
     Active Substance: AMOXICILLIN SODIUM
     Indication: ANTIBIOTIC PROPHYLAXIS
     Dosage: 3 GRAM, QD
     Dates: start: 20170727, end: 20170802
  3. TRACTOCILE [Suspect]
     Active Substance: ATOSIBAN
     Indication: THREATENED LABOUR
     Dosage: UNKNOWN
     Route: 064
     Dates: start: 20170725, end: 20170726
  4. SOLU-MEDROL [Suspect]
     Active Substance: METHYLPREDNISOLONE SODIUM SUCCINATE
     Dosage: 1 GRAM, QD
     Route: 064
     Dates: start: 20170721, end: 20170723
  5. CELESTENE [BETAMETHASONE] [Suspect]
     Active Substance: BETAMETHASONE
     Indication: THREATENED LABOUR
     Dosage: UNK
     Route: 064
     Dates: start: 20170725, end: 20170726
  6. TYSABRI [Suspect]
     Active Substance: NATALIZUMAB
     Dosage: 300 MILLIGRAM, QD
     Route: 064
     Dates: start: 20170902, end: 20170902
  7. TYSABRI [Suspect]
     Active Substance: NATALIZUMAB
     Indication: RELAPSING-REMITTING MULTIPLE SCLEROSIS
     Dosage: 300 MILLIGRAM, QM
     Route: 064
     Dates: start: 20170120, end: 20170120
  8. ADALATE [Suspect]
     Active Substance: NIFEDIPINE
     Indication: THREATENED LABOUR
     Dosage: 80 MILLIGRAM, QD
     Route: 064
     Dates: start: 20170727, end: 20170728
  9. TYSABRI [Suspect]
     Active Substance: NATALIZUMAB
     Indication: RELAPSING MULTIPLE SCLEROSIS
     Dosage: 300 MILLIGRAM, ONCE, IN TOTAL
     Route: 064
     Dates: start: 20170802, end: 20170802
  10. SOLU-MEDROL [Suspect]
     Active Substance: METHYLPREDNISOLONE SODIUM SUCCINATE
     Indication: RELAPSING MULTIPLE SCLEROSIS
     Dosage: 500 MILLIGRAM, QD
     Route: 064
     Dates: start: 20170731, end: 20170731

REACTIONS (2)
  - Inguinal hernia [Recovered/Resolved]
  - Low birth weight baby [Recovering/Resolving]

NARRATIVE: CASE EVENT DATE: 20170930
